FAERS Safety Report 9054533 (Version 1)
Quarter: 2013Q1

REPORT INFORMATION
  Report Type: Spontaneous
  Country: FR (occurrence: FR)
  Receive Date: 20130208
  Receipt Date: 20130208
  Transmission Date: 20140127
  Serious: Yes (Death, Other)
  Sender: FDA-Public Use
  Company Number: FR-ASTRAZENECA-2013SE08160

PATIENT
  Age: 81 Year
  Sex: Female

DRUGS (9)
  1. INEXIUM [Suspect]
     Indication: PRODUCT USED FOR UNKNOWN INDICATION
     Route: 048
     Dates: start: 20120730, end: 20121214
  2. MIANSERINE ARROW [Suspect]
     Indication: DEPRESSION
     Route: 048
     Dates: start: 20120803, end: 20121214
  3. PARACETAMOL [Concomitant]
     Route: 048
  4. SERESTA [Concomitant]
     Route: 048
  5. SKENAN [Concomitant]
     Route: 048
  6. ACTISKENAN [Concomitant]
     Route: 048
  7. TRANSIPEG [Concomitant]
     Route: 048
  8. SALAZOPYRINE [Concomitant]
     Route: 048
  9. PREDNISONE [Concomitant]
     Route: 048

REACTIONS (4)
  - Agranulocytosis [Fatal]
  - Lung infection [Fatal]
  - Hyperchromic anaemia [Unknown]
  - C-reactive protein increased [Unknown]
